FAERS Safety Report 15464598 (Version 2)
Quarter: 2018Q4

REPORT INFORMATION
  Report Type: Spontaneous
  Country: US (occurrence: US)
  Receive Date: 20181004
  Receipt Date: 20181004
  Transmission Date: 20190204
  Serious: Yes (Other)
  Sender: FDA-Public Use
  Company Number: US-MELINTA-US-MDCO-18-00027

PATIENT
  Age: 60 Year
  Sex: Male

DRUGS (2)
  1. ORBACTIV [Suspect]
     Active Substance: ORITAVANCIN
     Indication: STREPTOCOCCAL SEPSIS
     Dosage: NOT REPORTED
     Route: 041
     Dates: start: 20171017
  2. ORBACTIV [Suspect]
     Active Substance: ORITAVANCIN
     Indication: EXTRADURAL ABSCESS
     Dosage: NOT REPORTED
     Route: 041
     Dates: start: 20171002

REACTIONS (4)
  - Anaphylactic reaction [Unknown]
  - Flushing [Unknown]
  - Off label use [Unknown]
  - Chest pain [Unknown]

NARRATIVE: CASE EVENT DATE: 201710
